FAERS Safety Report 16810471 (Version 1)
Quarter: 2019Q3

REPORT INFORMATION
  Report Type: Report from Study
  Country: US (occurrence: US)
  Receive Date: 20190916
  Receipt Date: 20190916
  Transmission Date: 20191005
  Serious: Yes (Other)
  Sender: FDA-Public Use
  Company Number: US-JNJFOC-20190306717

PATIENT
  Sex: Male

DRUGS (2)
  1. IMBRUVICA [Suspect]
     Active Substance: IBRUTINIB
     Indication: CHRONIC LYMPHOCYTIC LEUKAEMIA
     Route: 048
     Dates: start: 20180520
  2. IMBRUVICA [Suspect]
     Active Substance: IBRUTINIB
     Route: 048
     Dates: start: 20190715

REACTIONS (6)
  - Arthralgia [Unknown]
  - Musculoskeletal pain [Recovering/Resolving]
  - Muscle spasms [Recovering/Resolving]
  - Joint swelling [Not Recovered/Not Resolved]
  - Synovial cyst [Recovering/Resolving]
  - Peripheral swelling [Unknown]
